FAERS Safety Report 10745944 (Version 1)
Quarter: 2015Q1

REPORT INFORMATION
  Report Type: Spontaneous
  Country: TR (occurrence: TR)
  Receive Date: 20150128
  Receipt Date: 20150128
  Transmission Date: 20150721
  Serious: Yes (Hospitalization)
  Sender: FDA-Public Use
  Company Number: PHHY2015TR009614

PATIENT
  Age: 73 Year
  Sex: Female

DRUGS (4)
  1. OMEPRAZOLE. [Suspect]
     Active Substance: OMEPRAZOLE
     Indication: PEPTIC ULCER
  2. SPIRONOLACTONE. [Concomitant]
     Active Substance: SPIRONOLACTONE
     Indication: PRODUCT USED FOR UNKNOWN INDICATION
  3. HYDROCHLORIDE [Concomitant]
     Indication: HYPERTENSION
  4. LISINOPRIL. [Concomitant]
     Active Substance: LISINOPRIL
     Indication: HYPERTENSION
     Route: 065

REACTIONS (8)
  - Paraesthesia [Recovered/Resolved]
  - Hyperparathyroidism [Recovered/Resolved]
  - Fatigue [Recovered/Resolved]
  - Hypomagnesaemia [Recovered/Resolved]
  - Hypocalcaemia [Recovered/Resolved]
  - Loss of consciousness [Recovered/Resolved]
  - Muscle spasms [Recovered/Resolved]
  - Generalised tonic-clonic seizure [Recovered/Resolved]
